FAERS Safety Report 5418002-5 (Version None)
Quarter: 2007Q3

REPORT INFORMATION
  Report Type: 
  Country: None (occurrence: None)
  Receive Date: 20070817
  Receipt Date: 20070730
  Transmission Date: 20080115
  Serious: No
  Sender: FDA-Public Use
  Company Number: A0663681A

PATIENT
  Age: 58 Year
  Sex: Female
  Weight: 68.2 kg

DRUGS (1)
  1. VERAMYST [Suspect]
     Route: 045
     Dates: start: 20070601, end: 20070601

REACTIONS (1)
  - NASAL ULCER [None]
